FAERS Safety Report 9697422 (Version 1)
Quarter: 2013Q4

REPORT INFORMATION
  Report Type: Spontaneous
  Country: US (occurrence: None)
  Receive Date: 20131119
  Receipt Date: 20131119
  Transmission Date: 20140711
  Serious: Yes (Disabling, Other)
  Sender: FDA-Public Use
  Company Number: None

PATIENT
  Age: 53 Year
  Sex: Female
  Weight: 63.5 kg

DRUGS (1)
  1. CLONAZEPAM [Suspect]
     Indication: INSOMNIA
     Dosage: 1 PILL  ONCE DAILY  TAKEN BY MOUTH
     Route: 048
     Dates: start: 20120601, end: 20120808

REACTIONS (9)
  - Drug dependence [None]
  - Insomnia [None]
  - Condition aggravated [None]
  - Arthralgia [None]
  - Bone pain [None]
  - Depression [None]
  - Skin burning sensation [None]
  - Withdrawal syndrome [None]
  - Mental disorder [None]
